FAERS Safety Report 24018667 (Version 1)
Quarter: 2024Q2

REPORT INFORMATION
  Report Type: Spontaneous
  Country: US (occurrence: US)
  Receive Date: 20240627
  Receipt Date: 20240627
  Transmission Date: 20240716
  Serious: Yes (Hospitalization)
  Sender: FDA-Public Use
  Company Number: US-STRIDES ARCOLAB LIMITED-2024SP007477

PATIENT
  Age: 92 Year
  Sex: Male

DRUGS (2)
  1. SEVELAMER CARBONATE [Suspect]
     Active Substance: SEVELAMER CARBONATE
     Indication: Chronic kidney disease
     Dosage: 800 MG, THREE TIMES A DAY
     Route: 048
  2. SEVELAMER CARBONATE [Suspect]
     Active Substance: SEVELAMER CARBONATE
     Indication: Acute kidney injury

REACTIONS (3)
  - Oesophagitis [Unknown]
  - Gastrointestinal mucosal disorder [Unknown]
  - Gastrointestinal haemorrhage [Unknown]
